FAERS Safety Report 21239057 (Version 1)
Quarter: 2022Q3

REPORT INFORMATION
  Report Type: Spontaneous
  Country: CN (occurrence: CN)
  Receive Date: 20220822
  Receipt Date: 20220822
  Transmission Date: 20221027
  Serious: Yes (Other)
  Sender: FDA-Public Use
  Company Number: CN-PFIZER INC-PV202200039098

PATIENT
  Age: 86 Year
  Sex: Male

DRUGS (3)
  1. TIGECYCLINE [Suspect]
     Active Substance: TIGECYCLINE
     Indication: Anti-infective therapy
     Dosage: 100 MG, Q12H
     Route: 041
     Dates: start: 20180706, end: 20180717
  2. PIPERACILLIN\SULBACTAM [Concomitant]
     Active Substance: PIPERACILLIN\SULBACTAM
     Indication: Anti-infective therapy
     Dosage: 5.0 G, 3X/DAY
     Route: 042
     Dates: start: 20180706, end: 20180717
  3. VITAMIN K1 [Concomitant]
     Active Substance: PHYTONADIONE
     Dosage: 10 MG, 1X/DAY
     Dates: start: 20180629, end: 20180711

REACTIONS (2)
  - Off label use [Unknown]
  - Coagulopathy [Recovered/Resolved]

NARRATIVE: CASE EVENT DATE: 20180706
